FAERS Safety Report 21918553 (Version 1)
Quarter: 2023Q1

REPORT INFORMATION
  Report Type: Spontaneous
  Country: US (occurrence: None)
  Receive Date: 20230126
  Receipt Date: 20230126
  Transmission Date: 20230417
  Serious: Yes (Hospitalization)
  Sender: FDA-Public Use
  Company Number: None

PATIENT
  Sex: Male
  Weight: 103 kg

DRUGS (18)
  1. DARATUMUMAB\HYALURONIDASE-FIHJ [Suspect]
     Active Substance: DARATUMUMAB\HYALURONIDASE-FIHJ
     Dates: end: 20230105
  2. DEXAMETHASONE [Suspect]
     Active Substance: DEXAMETHASONE
     Dates: end: 20230119
  3. LENALIDOMIDE [Suspect]
     Active Substance: LENALIDOMIDE
     Dates: end: 20230117
  4. DULOXETINE [Concomitant]
     Active Substance: DULOXETINE
  5. EPINPHRINE [Concomitant]
  6. FAMOTIDINE [Concomitant]
     Active Substance: FAMOTIDINE
  7. INSULIN NOS [Concomitant]
     Active Substance: INSULIN NOS
  8. VITAMINS [Concomitant]
     Active Substance: VITAMINS
  9. ONDANSETRON [Concomitant]
     Active Substance: ONDANSETRON
  10. ROSUVASTATIN [Concomitant]
     Active Substance: ROSUVASTATIN
  11. SENNA-DUCUSATE [Concomitant]
  12. TAMSULOSIN [Concomitant]
     Active Substance: TAMSULOSIN
  13. ACETAMINOPHEN [Concomitant]
     Active Substance: ACETAMINOPHEN
  14. ACYCLOVIR [Concomitant]
     Active Substance: ACYCLOVIR
  15. APIXABAN [Concomitant]
     Active Substance: APIXABAN
  16. MAGNESIUM [Concomitant]
     Active Substance: MAGNESIUM
  17. MELATONIN [Concomitant]
     Active Substance: MELATONIN
  18. SODIUM BICARBONATE [Suspect]
     Active Substance: SODIUM BICARBONATE

REACTIONS (18)
  - Acute kidney injury [None]
  - Dysuria [None]
  - Hyperglycaemia [None]
  - Hiccups [None]
  - Gastrooesophageal reflux disease [None]
  - Dehydration [None]
  - Injection site rash [None]
  - Febrile neutropenia [None]
  - Influenza A virus test positive [None]
  - Dyspnoea [None]
  - Nasal congestion [None]
  - Cough [None]
  - Dysuria [None]
  - Tremor [None]
  - Pallor [None]
  - Confusional state [None]
  - Disorientation [None]
  - Gait disturbance [None]

NARRATIVE: CASE EVENT DATE: 20230118
